FAERS Safety Report 13181187 (Version 2)
Quarter: 2017Q1

REPORT INFORMATION
  Report Type: Spontaneous
  Country: US (occurrence: US)
  Receive Date: 20170202
  Receipt Date: 20170329
  Transmission Date: 20170428
  Serious: No
  Sender: FDA-Public Use
  Company Number: US-SMITH AND NEPHEW, INC-2016SMT00858

PATIENT
  Age: 50 Year
  Sex: Female
  Weight: 141.95 kg

DRUGS (19)
  1. OMEGA FISH OIL [Concomitant]
     Active Substance: FISH OIL\OMEGA-3 FATTY ACIDS
     Dosage: 1000 MG, 2X/DAY
     Route: 048
  2. RENA-VITE B COMPLEX [Concomitant]
     Dosage: 1 TABLETS, 1X/DAY
  3. IRON COMPLEX FERREX [Concomitant]
     Dosage: 150 MG, 1X/DAY
  4. LOVASTATIN. [Concomitant]
     Active Substance: LOVASTATIN
     Dosage: 20 MG, 1X/DAY
     Route: 048
  5. ACETAMINOPHEN AND CODEINE [Concomitant]
     Active Substance: ACETAMINOPHEN\CODEINE PHOSPHATE
     Dosage: 2 DOSAGE UNITS, 2X/DAY
     Dates: start: 2009
  6. ASPIRIN. [Concomitant]
     Active Substance: ASPIRIN
     Dosage: 81 MG, 1X/DAY
  7. IRON SHOTS [Concomitant]
     Dosage: UNK, 1X/MONTH
  8. FEXOFENADINE [Concomitant]
     Active Substance: FEXOFENADINE\FEXOFENADINE HYDROCHLORIDE
     Dosage: UNK, 1X/DAY AS NEEDED
  9. COLLAGENASE SANTYL [Suspect]
     Active Substance: COLLAGENASE CLOSTRIDIUM HISTOLYTICUM
     Indication: DIABETIC ULCER
     Dosage: UNK, 1X/DAY
     Route: 061
     Dates: start: 20160822
  10. VITAMIN D [Concomitant]
     Active Substance: CHOLECALCIFEROL
     Dosage: 1000 IU, 1X/DAY
     Route: 048
  11. NOVOLIN N [Concomitant]
     Active Substance: INSULIN HUMAN
     Dosage: 25 U, 1X/DAY
  12. NOVOLIN N [Concomitant]
     Active Substance: INSULIN HUMAN
     Dosage: 30 U, 1X/DAY
  13. HUMALOG KWIKPEN [Concomitant]
     Active Substance: INSULIN LISPRO
     Dosage: UNK, 2X/DAY SLIDING SCALE
  14. DULCOLAX NOS [Concomitant]
     Active Substance: BISACODYL OR DOCUSATE SODIUM
     Dosage: 3 DOSAGE UNITS, 1X/DAY
  15. GABAPENTIN. [Concomitant]
     Active Substance: GABAPENTIN
     Dosage: 300 MG, 1X/DAY
     Route: 048
  16. EPOETIN ALFA [Concomitant]
     Active Substance: ERYTHROPOIETIN
     Dosage: 1000 U, 2X/WEEK
  17. HEPARIN [Concomitant]
     Active Substance: HEPARIN SODIUM
     Dosage: 9000 U, 2X/WEEK
  18. REGRANEX [Concomitant]
     Active Substance: BECAPLERMIN
     Indication: DIABETIC ULCER
     Dosage: UNK, 1X/DAY
     Route: 061
     Dates: start: 201608, end: 201608
  19. OMEPRAZOLE. [Concomitant]
     Active Substance: OMEPRAZOLE
     Dosage: 40 MG, 1X/DAY
     Route: 048

REACTIONS (1)
  - Wound complication [Not Recovered/Not Resolved]

NARRATIVE: CASE EVENT DATE: 201608
